FAERS Safety Report 18948680 (Version 1)
Quarter: 2021Q1

REPORT INFORMATION
  Report Type: Spontaneous
  Country: US (occurrence: US)
  Receive Date: 20210226
  Receipt Date: 20210226
  Transmission Date: 20210420
  Serious: No
  Sender: FDA-Public Use
  Company Number: US-ROCHE-2510420

PATIENT
  Sex: Female
  Weight: 68.1 kg

DRUGS (3)
  1. XOLAIR [Suspect]
     Active Substance: OMALIZUMAB
     Indication: ASTHMA
     Dosage: STARTED ABOUT 3 MONTH AGO DOSE INVOLVES 2 SYRINGES
     Route: 058
     Dates: start: 2019
  2. XOLAIR [Suspect]
     Active Substance: OMALIZUMAB
     Dosage: STARTED ABOUT 5 YEARS AGO ; XOLAIR VIAL
     Route: 058
     Dates: start: 2019
  3. XOLAIR [Suspect]
     Active Substance: OMALIZUMAB
     Dosage: STARTED ABOUT 3 MONTHS AGO DOSE INVOLVES 1 SYRINGE ; 1  75 MG PREFILLED SYRINGE
     Route: 058
     Dates: start: 2019

REACTIONS (2)
  - Injection site pain [Not Recovered/Not Resolved]
  - Product quality issue [Unknown]
